FAERS Safety Report 9410817 (Version 1)
Quarter: 2013Q3

REPORT INFORMATION
  Report Type: Spontaneous
  Country: GB (occurrence: GB)
  Receive Date: 20130719
  Receipt Date: 20130719
  Transmission Date: 20140515
  Serious: Yes (Death)
  Sender: FDA-Public Use
  Company Number: GB-PFIZER INC-2013150670

PATIENT
  Age: 70 Year
  Sex: Female

DRUGS (3)
  1. DALACIN [Suspect]
     Indication: BACTERIAL VAGINOSIS
     Dosage: UNK
     Route: 067
     Dates: start: 201305
  2. WARFARIN [Concomitant]
     Dosage: UNK
  3. OMEPRAZOLE [Concomitant]
     Dosage: UNK

REACTIONS (4)
  - Death [Fatal]
  - Scratch [Unknown]
  - Application site haemorrhage [Unknown]
  - Product quality issue [Unknown]
